FAERS Safety Report 7708097 (Version 3)
Quarter: 2012Q4

REPORT INFORMATION
  Report Type: 
  Country: US (occurrence: US)
  Receive Date: 20101214
  Receipt Date: 20121102
  Transmission Date: 20130627
  Serious: No
  Sender: FDA-Public Use
  Company Number: US-ASTRAZENECA-2010SE10404

PATIENT
  Age: 61 Year
  Sex: Female
  Weight: 71.7 kg

DRUGS (5)
  1. CRESTOR [Suspect]
     Indication: BLOOD CHOLESTEROL INCREASED
     Route: 048
  2. CRESTOR [Suspect]
     Indication: BLOOD CHOLESTEROL INCREASED
     Route: 048
     Dates: start: 20100228
  3. ULTRAM [Concomitant]
     Indication: RIB FRACTURE
  4. DIOVAN [Concomitant]
     Indication: HYPERTENSION
  5. DIFFERENT KINDS OF MEDICINE [Concomitant]

REACTIONS (1)
  - Alopecia [Recovering/Resolving]
